FAERS Safety Report 5201553-6 (Version None)
Quarter: 2007Q1

REPORT INFORMATION
  Report Type: 
  Country: None (occurrence: None)
  Receive Date: 20070108
  Receipt Date: 20061227
  Transmission Date: 20070707
  Serious: Yes (Death)
  Sender: FDA-Public Use
  Company Number: JP-PFIZER INC-2006156054

PATIENT
  Age: 79 Year
  Sex: Female

DRUGS (3)
  1. SULPERAZON [Suspect]
     Route: 042
  2. TEGAFUR/GIMERACIL/OTERACIL POTASSIUM [Concomitant]
     Route: 048
  3. TAXOTERE [Concomitant]
     Route: 042

REACTIONS (1)
  - STEVENS-JOHNSON SYNDROME [None]
